FAERS Safety Report 25265424 (Version 2)
Quarter: 2025Q2

REPORT INFORMATION
  Report Type: Spontaneous
  Country: IT (occurrence: IT)
  Receive Date: 20250502
  Receipt Date: 20250512
  Transmission Date: 20250716
  Serious: Yes (Other)
  Sender: MYLAN
  Company Number: IT-PFM-2025-01853

PATIENT
  Age: 85 Year
  Sex: Female

DRUGS (12)
  1. PANTOPRAZOLE [Suspect]
     Active Substance: PANTOPRAZOLE
     Indication: Product used for unknown indication
  2. PANTOPRAZOLE [Suspect]
     Active Substance: PANTOPRAZOLE
     Route: 042
  3. PANTOPRAZOLE [Suspect]
     Active Substance: PANTOPRAZOLE
     Route: 042
  4. PANTOPRAZOLE [Suspect]
     Active Substance: PANTOPRAZOLE
  5. FERROUS SULFATE [Suspect]
     Active Substance: FERROUS SULFATE
     Indication: Anaemia
  6. FERROUS SULFATE [Suspect]
     Active Substance: FERROUS SULFATE
     Route: 065
  7. FERROUS SULFATE [Suspect]
     Active Substance: FERROUS SULFATE
     Route: 065
  8. FERROUS SULFATE [Suspect]
     Active Substance: FERROUS SULFATE
  9. WARFARIN [Suspect]
     Active Substance: WARFARIN
     Indication: Melaena
  10. WARFARIN [Suspect]
     Active Substance: WARFARIN
     Indication: Atrial fibrillation
     Route: 065
  11. WARFARIN [Suspect]
     Active Substance: WARFARIN
     Route: 065
  12. WARFARIN [Suspect]
     Active Substance: WARFARIN

REACTIONS (5)
  - Melaena [Unknown]
  - Gastrointestinal haemorrhage [Unknown]
  - Gastrointestinal angiodysplasia [Unknown]
  - Product use in unapproved indication [Unknown]
  - Off label use [Unknown]
